FAERS Safety Report 19373137 (Version 1)
Quarter: 2021Q2

REPORT INFORMATION
  Report Type: Spontaneous
  Country: US (occurrence: US)
  Receive Date: 20210604
  Receipt Date: 20210604
  Transmission Date: 20210717
  Serious: Yes (Other)
  Sender: FDA-Public Use
  Company Number: US-CIPLA LTD.-2021US03590

PATIENT

DRUGS (4)
  1. HYDROCODONE/ACETAMINOPHEN [Concomitant]
     Active Substance: ACETAMINOPHEN\HYDROCODONE
     Indication: SWELLING
  2. HYDROCODONE/ACETAMINOPHEN [Concomitant]
     Active Substance: ACETAMINOPHEN\HYDROCODONE
     Indication: PAIN
     Dosage: 1 DOSAGE FORM, QID, EVERY 6 HOURS
     Route: 065
     Dates: start: 20210430
  3. GABAPENTIN. [Suspect]
     Active Substance: GABAPENTIN
     Indication: LIGAMENT PAIN
     Dosage: 200 MILLIGRAM, TID
     Route: 065
     Dates: start: 20210503
  4. IBUPROFEN. [Concomitant]
     Active Substance: IBUPROFEN
     Indication: INFLAMMATORY PAIN
     Dosage: 800 MILLIGRAM, QD
     Route: 065
     Dates: start: 20210430

REACTIONS (7)
  - Off label use [Unknown]
  - Aggression [Not Recovered/Not Resolved]
  - Anger [Not Recovered/Not Resolved]
  - Suicidal ideation [Not Recovered/Not Resolved]
  - Screaming [Not Recovered/Not Resolved]
  - Panic reaction [Not Recovered/Not Resolved]
  - Product use in unapproved indication [Unknown]

NARRATIVE: CASE EVENT DATE: 20210503
